FAERS Safety Report 26185381 (Version 1)
Quarter: 2025Q4

REPORT INFORMATION
  Report Type: Other
  Country: GB (occurrence: GB)
  Receive Date: 20251222
  Receipt Date: 20251222
  Transmission Date: 20260118
  Serious: Yes (Life-Threatening, Hospitalization, Disabling, Other)
  Sender: MACLEODS
  Company Number: GB-TEVA-VS-3398936

PATIENT

DRUGS (14)
  1. ENTACAPONE [Suspect]
     Active Substance: ENTACAPONE
     Indication: Parkinson^s disease
     Route: 048
  2. RASAGILINE [Suspect]
     Active Substance: RASAGILINE
     Indication: Parkinson^s disease
     Dosage: ONE TABLET ONCE A DAY (TEVA)
  3. LEVODOPA [Suspect]
     Active Substance: LEVODOPA
     Indication: Parkinson^s disease
     Dosage: 100/G/25MG CAPSULES, ONE CAPSULE 7 TIMES A DAY
  4. LEVODOPA [Suspect]
     Active Substance: LEVODOPA
     Dosage: 8MG ONE TABLET ONCE A DAY
     Route: 065
  5. FLUTICASONE FUROATE [Concomitant]
     Active Substance: FLUTICASONE FUROATE
     Indication: Product used for unknown indication
     Dosage: TWO PUFFS IN EACH NOSTRIL ONCE DAILY
     Route: 045
  6. CLONAZEPAM [Concomitant]
     Active Substance: CLONAZEPAM
     Indication: Product used for unknown indication
     Dosage: 500 UG THREE AT NIGHT TIME
     Route: 048
  7. CHOLECALCIFEROL [Concomitant]
     Active Substance: CHOLECALCIFEROL
     Indication: Product used for unknown indication
     Dosage: 1000 ONE, ONCE A DAY
     Route: 065
  8. TAMSULOSIN [Concomitant]
     Active Substance: TAMSULOSIN
     Indication: Product used for unknown indication
     Route: 048
  9. ACETAMINOPHEN [Concomitant]
     Active Substance: ACETAMINOPHEN
     Indication: Product used for unknown indication
     Dosage: 1 OR 2 AS NEEDED UNTO 8 IN 24 HOURS
     Route: 048
  10. BENSERAZIDE HYDROCHLORIDE\LEVODOPA [Concomitant]
     Active Substance: BENSERAZIDE HYDROCHLORIDE\LEVODOPA
     Indication: Product used for unknown indication
     Dosage: 50MG UP TO THREE A DAY AS REQUIRED
     Route: 065
  11. BENSERAZIDE HYDROCHLORIDE\LEVODOPA [Concomitant]
     Active Substance: BENSERAZIDE HYDROCHLORIDE\LEVODOPA
     Dosage: 8MG ONE TABLET ONCE A DAY
     Route: 065
  12. BENSERAZIDE HYDROCHLORIDE\LEVODOPA [Concomitant]
     Active Substance: BENSERAZIDE HYDROCHLORIDE\LEVODOPA
     Indication: Product used for unknown indication
     Dosage: 100/25MG, TWO CAPSULES EACH EVENING
     Route: 048
  13. REQUIP XL [Concomitant]
     Active Substance: ROPINIROLE HYDROCHLORIDE
     Indication: Product used for unknown indication
     Dosage: 8MG ONE TABLET ONCE A DAY
     Route: 048
  14. BENSERAZIDE HYDROCHLORIDE\LEVODOPA [Concomitant]
     Active Substance: BENSERAZIDE HYDROCHLORIDE\LEVODOPA
     Indication: Product used for unknown indication
     Dosage: 50MG UP TO THREE A DAY AS REQUIRED
     Route: 048

REACTIONS (20)
  - Pulmonary embolism [Unknown]
  - Muscle spasms [Recovered/Resolved]
  - Peripheral venous disease [Unknown]
  - Thrombosis [Unknown]
  - Paranoia [Recovered/Resolved with Sequelae]
  - Tendon discomfort [Recovered/Resolved]
  - Post thrombotic syndrome [Not Recovered/Not Resolved]
  - Chromaturia [Recovered/Resolved]
  - Myalgia [Not Recovered/Not Resolved]
  - Chest pain [Not Recovered/Not Resolved]
  - Oxygen saturation decreased [Recovered/Resolved]
  - Delirium [Recovered/Resolved with Sequelae]
  - Hypertension [Recovered/Resolved]
  - Dyspnoea [Recovered/Resolved]
  - Dyskinesia [Unknown]
  - Product prescribing error [Unknown]
  - Balance disorder [Unknown]
  - Muscular weakness [Unknown]
  - Vascular pain [Recovering/Resolving]
  - Tendon disorder [Unknown]

NARRATIVE: CASE EVENT DATE: 20250101
